FAERS Safety Report 23098533 (Version 2)
Quarter: 2024Q2

REPORT INFORMATION
  Report Type: Spontaneous
  Country: US (occurrence: US)
  Receive Date: 20231023
  Receipt Date: 20240404
  Transmission Date: 20240715
  Serious: No
  Sender: FDA-Public Use
  Company Number: US-BRISTOL-MYERS SQUIBB COMPANY-2023-149012

PATIENT
  Age: 34 Year
  Sex: Male
  Weight: 74.84 kg

DRUGS (1)
  1. ZEPOSIA [Suspect]
     Active Substance: OZANIMOD HYDROCHLORIDE
     Indication: Colitis ulcerative
     Dosage: DOSE : STARTER KIT; 0.92 MG;     FREQ : QD
     Route: 048
     Dates: start: 2023

REACTIONS (2)
  - Treatment failure [Unknown]
  - Product storage error [Unknown]
